FAERS Safety Report 9272822 (Version 3)
Quarter: 2013Q2

REPORT INFORMATION
  Report Type: Spontaneous
  Country: GB (occurrence: GB)
  Receive Date: 20130506
  Receipt Date: 20130529
  Transmission Date: 20140414
  Serious: Yes (Hospitalization)
  Sender: FDA-Public Use
  Company Number: GB-PFIZER INC-2013128240

PATIENT
  Age: 75 Year
  Sex: Male
  Weight: 81 kg

DRUGS (9)
  1. RAMIPRIL [Suspect]
     Dosage: 10 MG, 1X/DAY
     Route: 048
  2. TAMSULOSIN [Suspect]
     Dosage: 400 UG, 1X/DAY
     Route: 048
  3. OMEPRAZOLE [Suspect]
     Dosage: 20 MG, 1X/DAY
     Route: 048
  4. ZOLADEX [Concomitant]
     Route: 058
     Dates: start: 20121115
  5. DOCETAXEL [Concomitant]
     Route: 042
     Dates: start: 20130114
  6. MIRTAZAPINE [Concomitant]
     Route: 048
  7. ATORVASTATIN [Concomitant]
     Route: 048
  8. AMLODIPINE [Concomitant]
     Route: 048
  9. TIMOLOL [Concomitant]
     Dosage: 0.5 %, UNK
     Route: 050

REACTIONS (7)
  - Febrile neutropenia [Not Recovered/Not Resolved]
  - Diarrhoea [Not Recovered/Not Resolved]
  - Pyrexia [Unknown]
  - White blood cell count decreased [Not Recovered/Not Resolved]
  - Neutrophil count decreased [Not Recovered/Not Resolved]
  - Haemoglobin decreased [Not Recovered/Not Resolved]
  - Red blood cell sedimentation rate increased [Not Recovered/Not Resolved]
